FAERS Safety Report 5485535-5 (Version None)
Quarter: 2007Q4

REPORT INFORMATION
  Report Type: 
  Country: None (occurrence: None)
  Receive Date: 20071011
  Receipt Date: 20071011
  Transmission Date: 20080405
  Serious: No
  Sender: FDA-Public Use
  Company Number: None

PATIENT
  Age: 10 Year
  Sex: Male
  Weight: 30.8446 kg

DRUGS (2)
  1. OMNICEF [Suspect]
     Indication: BRONCHITIS
     Dosage: 250 PO BID
     Route: 048
     Dates: start: 20071007
  2. OMNICEF [Suspect]
     Indication: MASTOIDITIS
     Dosage: 250 PO BID
     Route: 048
     Dates: start: 20071007

REACTIONS (1)
  - VOMITING [None]
